FAERS Safety Report 6139719-3 (Version None)
Quarter: 2009Q2

REPORT INFORMATION
  Report Type: 
  Country: None (occurrence: None)
  Receive Date: 20090401
  Receipt Date: 20090330
  Transmission Date: 20091009
  Serious: Yes (Hospitalization)
  Sender: FDA-Public Use
  Company Number: US-B.I. PHARMACEUTICALS,INC./RIDGEFIELD-2009-BP-03860BP

PATIENT
  Age: 66 Year
  Sex: Female

DRUGS (2)
  1. COMBIVENT [Suspect]
     Indication: EMPHYSEMA
     Route: 055
     Dates: start: 20030101
  2. ALBUTEROL [Concomitant]
     Indication: EMPHYSEMA

REACTIONS (2)
  - ABDOMINAL PAIN UPPER [None]
  - DYSPNOEA [None]
